FAERS Safety Report 5421707-3 (Version None)
Quarter: 2007Q3

REPORT INFORMATION
  Report Type: 
  Country: None (occurrence: None)
  Receive Date: 20070821
  Receipt Date: 20070809
  Transmission Date: 20080115
  Serious: Yes (Other)
  Sender: FDA-Public Use
  Company Number: US-PFIZER INC-2007066811

PATIENT
  Sex: Male
  Weight: 97.5 kg

DRUGS (3)
  1. CHANTIX [Suspect]
     Indication: SMOKING CESSATION THERAPY
  2. LISINOPRIL [Concomitant]
  3. PAXIL [Concomitant]

REACTIONS (4)
  - FATIGUE [None]
  - IMPAIRED WORK ABILITY [None]
  - LETHARGY [None]
  - NAUSEA [None]
